FAERS Safety Report 16192218 (Version 3)
Quarter: 2020Q1

REPORT INFORMATION
  Report Type: Report from Study
  Country: US (occurrence: US)
  Receive Date: 20190412
  Receipt Date: 20200306
  Transmission Date: 20200409
  Serious: Yes (Death, Hospitalization, Other)
  Sender: FDA-Public Use
  Company Number: US-ACTELION-A-NJ2019-188912

PATIENT
  Age: 64 Year
  Sex: Female

DRUGS (23)
  1. OMEGA 3 + 6 COMPLEX [Concomitant]
  2. AMLODIPINE [Concomitant]
     Active Substance: AMLODIPINE BESYLATE
  3. HYDRALAZINE [Concomitant]
     Active Substance: HYDRALAZINE HYDROCHLORIDE
  4. RENVELA [Concomitant]
     Active Substance: SEVELAMER CARBONATE
  5. GABAPENTIN. [Concomitant]
     Active Substance: GABAPENTIN
  6. TURMERIC [Concomitant]
     Active Substance: HERBALS\TURMERIC
  7. SYMBICORT [Concomitant]
     Active Substance: BUDESONIDE\FORMOTEROL FUMARATE DIHYDRATE
  8. FLONASE [Concomitant]
     Active Substance: FLUTICASONE PROPIONATE
  9. NEPHRO VITE RX [Concomitant]
     Active Substance: ASCORBIC ACID\BIOTIN\CALCIUM PANTOTHENATE\CYANOCOBALAMIN\FOLIC ACID\NIACINAMIDE\PYRIDOXINE HYDROCHLORIDE\RIBOFLAVIN\THIAMINE MONONITRATE
  10. NORCO [Concomitant]
     Active Substance: ACETAMINOPHEN\HYDROCODONE BITARTRATE
  11. ALBUTEROL HFA [Concomitant]
     Active Substance: ALBUTEROL SULFATE
  12. TRAMADOL. [Concomitant]
     Active Substance: TRAMADOL
  13. TEMOVATE [Concomitant]
     Active Substance: CLOBETASOL PROPIONATE
  14. LIDOCAINE. [Concomitant]
     Active Substance: LIDOCAINE
     Route: 061
  15. TADALAFIL. [Concomitant]
     Active Substance: TADALAFIL
  16. CARVEDILOL. [Concomitant]
     Active Substance: CARVEDILOL
  17. TYLENOL [Concomitant]
     Active Substance: ACETAMINOPHEN
  18. PANTOPRAZOLE [Concomitant]
     Active Substance: PANTOPRAZOLE
  19. CAPSAICIN. [Concomitant]
     Active Substance: CAPSAICIN
     Route: 061
  20. OPSUMIT [Suspect]
     Active Substance: MACITENTAN
     Indication: PULMONARY HYPERTENSION
     Dosage: 10 MG, QD
     Route: 048
     Dates: start: 20190205, end: 202002
  21. CALCIUM ACETATE. [Concomitant]
     Active Substance: CALCIUM ACETATE
  22. ATORVASTATIN [Concomitant]
     Active Substance: ATORVASTATIN
  23. BENZONATATE. [Concomitant]
     Active Substance: BENZONATATE

REACTIONS (10)
  - Death [Fatal]
  - Pulmonary arterial wedge pressure [Unknown]
  - Pulmonary vascular resistance abnormality [Unknown]
  - Haemoptysis [Unknown]
  - Pneumonia [Unknown]
  - Dyspnoea [Unknown]
  - Pyrexia [Unknown]
  - Pulmonary arterial pressure increased [Unknown]
  - Therapy non-responder [Unknown]
  - Oedema peripheral [Unknown]

NARRATIVE: CASE EVENT DATE: 20190329
